FAERS Safety Report 5812829-3 (Version None)
Quarter: 2008Q3

REPORT INFORMATION
  Report Type: 
  Country: None (occurrence: None)
  Receive Date: 20080717
  Receipt Date: 20080711
  Transmission Date: 20090109
  Serious: Yes (Hospitalization)
  Sender: FDA-Public Use
  Company Number: GB-AMGEN-US186773

PATIENT
  Sex: Female
  Weight: 91 kg

DRUGS (9)
  1. ENBREL [Suspect]
     Indication: RHEUMATOID ARTHRITIS
     Route: 058
     Dates: end: 20050520
  2. PREDNISOLONE [Concomitant]
     Dosage: UNKNOWN
     Route: 065
  3. CO-AMILOFRUSE [Concomitant]
     Dosage: UNKNOWN
     Route: 065
  4. VIOXX [Concomitant]
     Dosage: UNKNOWN
     Route: 048
  5. OMEPRAZOLE [Concomitant]
     Dosage: UNKNOWN
     Route: 065
  6. SOLPADOL [Concomitant]
     Dosage: UNKNOWN
     Route: 065
  7. LEVOTHYROXINE SODIUM [Concomitant]
     Dosage: UNKNOWN
     Route: 065
  8. METHOTREXATE [Concomitant]
     Dosage: UNKNOWN
     Route: 065
  9. FOLIC ACID [Concomitant]
     Dosage: UNKNOWN
     Route: 065

REACTIONS (3)
  - EOSINOPHILIA [None]
  - LUNG DISORDER [None]
  - PULMONARY EMBOLISM [None]
